FAERS Safety Report 8990270 (Version 2)
Quarter: 2013Q1

REPORT INFORMATION
  Report Type: Spontaneous
  Country: CN (occurrence: CN)
  Receive Date: 20121228
  Receipt Date: 20130102
  Transmission Date: 20140127
  Serious: Yes (Death)
  Sender: FDA-Public Use
  Company Number: CN-ASTRAZENECA-2012SE95842

PATIENT
  Age: 23686 Day
  Sex: Male

DRUGS (3)
  1. DIPRIVAN [Suspect]
     Indication: ENDOSCOPY UPPER GASTROINTESTINAL TRACT
     Route: 042
  2. DIPRIVAN [Suspect]
     Indication: ENDOSCOPY UPPER GASTROINTESTINAL TRACT
     Route: 042
  3. FENTANYL [Concomitant]

REACTIONS (2)
  - Respiratory arrest [Fatal]
  - Cardiac arrest [Fatal]
